FAERS Safety Report 9802784 (Version 2)
Quarter: 2014Q1

REPORT INFORMATION
  Report Type: Spontaneous
  Country: FR (occurrence: FR)
  Receive Date: 20140108
  Receipt Date: 20140120
  Transmission Date: 20141002
  Serious: Yes (Hospitalization)
  Sender: FDA-Public Use
  Company Number: FR-ROCHE-1329678

PATIENT
  Age: 76 Year
  Sex: Female

DRUGS (3)
  1. ROCEPHINE [Suspect]
     Indication: ERYSIPELAS
     Route: 042
     Dates: start: 20130404, end: 20130408
  2. LATANOPROST [Concomitant]
  3. DOLIPRANE [Concomitant]
     Indication: PAIN

REACTIONS (1)
  - Drug reaction with eosinophilia and systemic symptoms [Recovered/Resolved]
